FAERS Safety Report 17563270 (Version 1)
Quarter: 2020Q1

REPORT INFORMATION
  Report Type: Spontaneous
  Country: US (occurrence: US)
  Receive Date: 20200312
  Receipt Date: 20200312
  Transmission Date: 20200409
  Serious: Yes (Hospitalization)
  Sender: FDA-Public Use
  Company Number: None

PATIENT
  Age: 73 Year
  Sex: Female
  Weight: 66 kg

DRUGS (2)
  1. CARBOPLATIN. [Suspect]
     Active Substance: CARBOPLATIN
     Indication: SQUAMOUS CELL CARCINOMA
     Route: 042
     Dates: start: 20191022, end: 20191126
  2. PACLITAXEL. [Suspect]
     Active Substance: PACLITAXEL
     Route: 042
     Dates: start: 20191022, end: 20191126

REACTIONS (7)
  - Dizziness [None]
  - Dehydration [None]
  - Hypophagia [None]
  - Weight decreased [None]
  - Failure to thrive [None]
  - Dysphagia [None]
  - Mucosal inflammation [None]

NARRATIVE: CASE EVENT DATE: 20191202
